FAERS Safety Report 18940459 (Version 1)
Quarter: 2021Q1

REPORT INFORMATION
  Report Type: Spontaneous
  Country: DE (occurrence: DE)
  Receive Date: 20210225
  Receipt Date: 20210225
  Transmission Date: 20210420
  Serious: Yes (Congenital Anomaly, Other)
  Sender: FDA-Public Use
  Company Number: DE-TORRENT-00019661

PATIENT
  Age: 1 Day
  Sex: Male
  Weight: 2 kg

DRUGS (2)
  1. DULOXETINE. [Suspect]
     Active Substance: DULOXETINE
     Indication: DEPRESSION
     Dosage: 60 [MG/D (30 MG/D) ]/ 60 MG/D UNTIL GW 6, AFTERWARDS 30 MG/D
     Route: 064
     Dates: start: 20200128, end: 20200610
  2. QUETIAPINE. [Suspect]
     Active Substance: QUETIAPINE
     Indication: SLEEP DISORDER
     Dosage: 25 [MG/D ]
     Route: 064
     Dates: start: 20200128, end: 20201104

REACTIONS (10)
  - Foetal exposure during pregnancy [Unknown]
  - Hypotonia neonatal [Recovered/Resolved]
  - Thrombocytopenia neonatal [Recovered/Resolved]
  - Hypoglycaemia neonatal [Recovered/Resolved]
  - Pulmonary artery stenosis [Unknown]
  - Cardiac septal hypertrophy [Unknown]
  - Small for dates baby [Unknown]
  - Coarctation of the aorta [Recovered/Resolved with Sequelae]
  - Atrial septal defect [Unknown]
  - Respiratory disorder neonatal [Recovered/Resolved]

NARRATIVE: CASE EVENT DATE: 20200128
